FAERS Safety Report 7990217-1 (Version None)
Quarter: 2011Q4

REPORT INFORMATION
  Report Type: 
  Country: None (occurrence: None)
  Receive Date: 20111219
  Receipt Date: 20111213
  Transmission Date: 20120403
  Serious: Yes (Other)
  Sender: FDA-Public Use
  Company Number: FR-PFIZER INC-2011303855

PATIENT
  Age: 68 Year
  Sex: Female

DRUGS (2)
  1. LYRICA [Suspect]
     Indication: PAIN
     Dosage: 150 MG, 2X/DAY
  2. LYRICA [Suspect]
     Indication: PARAESTHESIA

REACTIONS (5)
  - MUSCULOSKELETAL STIFFNESS [None]
  - TOXICITY TO VARIOUS AGENTS [None]
  - PARALYSIS [None]
  - PARAESTHESIA [None]
  - PAIN [None]
